FAERS Safety Report 18798897 (Version 1)
Quarter: 2021Q1

REPORT INFORMATION
  Report Type: Spontaneous
  Country: US (occurrence: US)
  Receive Date: 20210127
  Receipt Date: 20210127
  Transmission Date: 20210419
  Serious: No
  Sender: FDA-Public Use
  Company Number: None

PATIENT
  Sex: Male

DRUGS (3)
  1. HUMIRA [Suspect]
     Active Substance: ADALIMUMAB
     Indication: COLITIS
     Route: 058
  2. HUMIRA [Suspect]
     Active Substance: ADALIMUMAB
     Indication: GASTROENTERITIS
     Route: 058
  3. HUMIRA [Suspect]
     Active Substance: ADALIMUMAB
     Indication: IDIOPATHIC URTICARIA
     Route: 058

REACTIONS (1)
  - Drug ineffective [None]
